FAERS Safety Report 9182120 (Version 2)
Quarter: 2013Q3

REPORT INFORMATION
  Report Type: Spontaneous
  Country: US (occurrence: None)
  Receive Date: 20120626
  Receipt Date: 20130724
  Transmission Date: 20140515
  Serious: Yes (Other)
  Sender: FDA-Public Use
  Company Number: PHEH2012US007702

PATIENT
  Age: 73 Year
  Sex: Male
  Weight: 86.3 kg

DRUGS (6)
  1. DIOVAN HCT (VALSARTAN, HYDROCHLOROTHIAZIDE) UNKNOWN [Suspect]
     Indication: HYPERTENSION
     Dosage: 1 DF (160/12.5 MG)
     Route: 048
     Dates: start: 20060215
  2. RANEXA (RANOLAZINE) [Concomitant]
  3. CARVEDILOL (CARVEDILOL) [Concomitant]
  4. DIGOXIN (DIGOXIN) [Concomitant]
  5. WARFARIN (WARFARIN) [Concomitant]
  6. KLOR-CON (POTASSIUM CHLORIDE) [Concomitant]

REACTIONS (2)
  - Hypertension [None]
  - Blood pressure fluctuation [None]
